FAERS Safety Report 5934885-4 (Version None)
Quarter: 2008Q4

REPORT INFORMATION
  Report Type: 
  Country: None (occurrence: None)
  Receive Date: 20081027
  Receipt Date: 20081021
  Transmission Date: 20090506
  Serious: Yes (Hospitalization)
  Sender: FDA-Public Use
  Company Number: 2008BI022693

PATIENT
  Age: 58 Year
  Sex: Female

DRUGS (3)
  1. AVONEX [Suspect]
     Indication: MULTIPLE SCLEROSIS
     Dosage: 30 UG; QW; IM
     Route: 030
     Dates: start: 20010815
  2. . [Concomitant]
  3. . [Concomitant]

REACTIONS (3)
  - FALL [None]
  - FEMORAL NECK FRACTURE [None]
  - HIP FRACTURE [None]
